FAERS Safety Report 6664138-0 (Version None)
Quarter: 2010Q2

REPORT INFORMATION
  Report Type: 
  Country: None (occurrence: None)
  Receive Date: 20100401
  Receipt Date: 20100324
  Transmission Date: 20101027
  Serious: Yes (Hospitalization, Other)
  Sender: FDA-Public Use
  Company Number: B0643030A

PATIENT
  Age: 2 Year
  Sex: Female

DRUGS (1)
  1. AUGMENTIN '125' [Suspect]
     Indication: PHARYNGITIS
     Route: 065
     Dates: start: 20100211, end: 20100218

REACTIONS (2)
  - INFECTIOUS MONONUCLEOSIS [None]
  - RASH [None]
